FAERS Safety Report 11256989 (Version 3)
Quarter: 2015Q4

REPORT INFORMATION
  Report Type: Spontaneous
  Country: US (occurrence: US)
  Receive Date: 20150709
  Receipt Date: 20151027
  Transmission Date: 20160304
  Serious: Yes (Other)
  Sender: FDA-Public Use
  Company Number: US-009507513-1507USA003263

PATIENT
  Sex: Female

DRUGS (6)
  1. MAXZIDE [Concomitant]
     Active Substance: HYDROCHLOROTHIAZIDE\TRIAMTERENE
  2. VITAMINS (UNSPECIFIED) [Concomitant]
     Active Substance: VITAMINS
  3. FOSAMAX [Suspect]
     Active Substance: ALENDRONATE SODIUM
     Indication: OSTEOPOROSIS
     Dosage: 70MG 1 TABLET WEEKLY
     Route: 048
     Dates: start: 199007, end: 201506
  4. FOSAMAX [Suspect]
     Active Substance: ALENDRONATE SODIUM
     Dosage: UNK
     Route: 048
     Dates: start: 1995, end: 2015
  5. GLUCOTROL XL [Concomitant]
     Active Substance: GLIPIZIDE
  6. SYNTHROID [Concomitant]
     Active Substance: LEVOTHYROXINE SODIUM

REACTIONS (1)
  - Osteonecrosis of jaw [Not Recovered/Not Resolved]

NARRATIVE: CASE EVENT DATE: 201412
